FAERS Safety Report 6855526-8 (Version None)
Quarter: 2010Q3

REPORT INFORMATION
  Report Type: 
  Country: None (occurrence: None)
  Receive Date: 20100719
  Receipt Date: 20100708
  Transmission Date: 20110219
  Serious: Yes (Other)
  Sender: FDA-Public Use
  Company Number: US-JNJFOC-20100703283

PATIENT
  Sex: Male
  Weight: 68.04 kg

DRUGS (8)
  1. SANDOZ FENTANYL TRANSDERMAL SYSTEM [Suspect]
     Indication: PAIN
     Route: 062
  2. SANDOZ FENTANYL TRANSDERMAL SYSTEM [Suspect]
     Route: 062
  3. BACLOFEN [Concomitant]
     Indication: MUSCLE SPASMS
     Route: 048
  4. CYMBALTA [Concomitant]
     Indication: ANTIDEPRESSANT THERAPY
     Route: 048
  5. OXYBUTYNIN CHLORIDE [Concomitant]
     Indication: BLADDER SPASM
     Route: 048
  6. CLONAZEPAM [Concomitant]
     Indication: MUSCLE SPASMS
     Route: 048
  7. CLONAZEPAM [Concomitant]
     Indication: SLEEP DISORDER
     Route: 048
  8. RANITIDINE [Concomitant]
     Indication: GASTRIC DISORDER
     Route: 048

REACTIONS (6)
  - DENTAL CARIES [None]
  - DRUG DOSE OMISSION [None]
  - DRUG EFFECT DECREASED [None]
  - PRODUCT ADHESION ISSUE [None]
  - THROMBOSIS [None]
  - WITHDRAWAL SYNDROME [None]
